FAERS Safety Report 10488263 (Version 5)
Quarter: 2015Q3

REPORT INFORMATION
  Report Type: Spontaneous
  Country: IT (occurrence: IT)
  Receive Date: 20141002
  Receipt Date: 20150716
  Transmission Date: 20151125
  Serious: Yes (Hospitalization)
  Sender: FDA-Public Use
  Company Number: IT-BIOGENIDEC-2014BI097611

PATIENT
  Age: 44 Year
  Sex: Female

DRUGS (4)
  1. BISOPROLOL [Concomitant]
     Active Substance: BISOPROLOL
  2. TYSABRI [Suspect]
     Active Substance: NATALIZUMAB
     Indication: RELAPSING-REMITTING MULTIPLE SCLEROSIS
     Route: 042
     Dates: start: 20140711, end: 20140902
  3. PREDNISONE. [Concomitant]
     Active Substance: PREDNISONE
  4. ACETYLSALICYLIC ACID [Concomitant]
     Active Substance: ASPIRIN

REACTIONS (4)
  - Immune thrombocytopenic purpura [Recovered/Resolved]
  - Normochromic normocytic anaemia [Recovered/Resolved]
  - Acute coronary syndrome [Recovered/Resolved]
  - Aphasia [Recovered/Resolved]

NARRATIVE: CASE EVENT DATE: 20140902
